FAERS Safety Report 8914555 (Version 1)
Quarter: 2012Q4

REPORT INFORMATION
  Report Type: Report from Study
  Country: DK (occurrence: DE)
  Receive Date: 20121119
  Receipt Date: 20121119
  Transmission Date: 20130627
  Serious: Yes (Death)
  Sender: FDA-Public Use
  Company Number: DE-FRI-1000040389

PATIENT
  Sex: Female

DRUGS (12)
  1. ESCITALOPRAM [Suspect]
     Dosage: 5 mg
     Route: 048
     Dates: start: 20120419, end: 20120421
  2. CITALOPRAM [Suspect]
     Dosage: 10 mg
     Dates: end: 201204
  3. LYRICA [Suspect]
     Dosage: 50 mg
     Route: 048
     Dates: start: 20120419, end: 20120421
  4. OXAZEPAM [Suspect]
     Indication: DRUG WITHDRAWAL SYNDROME
     Dosage: 15 mg
     Route: 048
     Dates: start: 20120418, end: 20120420
  5. OXAZEPAM [Suspect]
     Dosage: 25 mg
     Route: 048
     Dates: start: 20120421, end: 20120421
  6. ZOLPIDEM [Suspect]
     Dosage: 5 mg
     Route: 048
     Dates: end: 201204
  7. MEDAZEPAM [Suspect]
     Dates: end: 201204
  8. ZOPICLONE [Suspect]
     Dates: end: 201204
  9. OTC SEDATIVES [Concomitant]
  10. CARBAMAZEPINE [Concomitant]
     Indication: DRUG WITHDRAWAL SYNDROME
     Dosage: 400 mg
     Route: 048
     Dates: start: 20120412, end: 20120415
  11. CARBAMAZEPINE [Concomitant]
     Dosage: 600 mg
     Route: 048
     Dates: start: 20120416, end: 20120416
  12. CARBAMAZEPINE [Concomitant]
     Dosage: 800 mg
     Route: 048
     Dates: start: 20120417, end: 20120418

REACTIONS (5)
  - Completed suicide [Fatal]
  - Asphyxia [Fatal]
  - Depression [None]
  - Pulse absent [None]
  - Hypoxia [None]
